FAERS Safety Report 25953808 (Version 2)
Quarter: 2025Q4

REPORT INFORMATION
  Report Type: Spontaneous
  Country: US (occurrence: US)
  Receive Date: 20251023
  Receipt Date: 20251104
  Transmission Date: 20260117
  Serious: No
  Sender: ROCHE
  Company Number: US-ROCHE-10000410711

PATIENT
  Age: 53 Year
  Sex: Female
  Weight: 82.37 kg

DRUGS (4)
  1. OCREVUS [Suspect]
     Active Substance: OCRELIZUMAB
     Indication: Relapsing-remitting multiple sclerosis
     Dosage: LOADING DOSE
     Route: 042
     Dates: start: 20251001, end: 20251001
  2. ACETAMINOPHEN [Concomitant]
     Active Substance: ACETAMINOPHEN
     Dosage: ONE TIME DOSE, PRE MEDICATION
     Route: 048
     Dates: start: 20251001, end: 20251001
  3. BENADRYL [Concomitant]
     Active Substance: DIPHENHYDRAMINE HYDROCHLORIDE
     Dosage: ONE TIME DOSE, PRE MEDICATION
     Route: 042
     Dates: start: 20251001, end: 20251001
  4. SOLU-MEDROL [Concomitant]
     Active Substance: METHYLPREDNISOLONE SODIUM SUCCINATE
     Dosage: ONE TIME DOSE, PRE MEDICATION
     Route: 042
     Dates: start: 20251001, end: 20251001

REACTIONS (5)
  - Feeling abnormal [Recovered/Resolved]
  - Pallor [Recovered/Resolved]
  - Hyperhidrosis [Recovered/Resolved]
  - Blood pressure decreased [Recovered/Resolved]
  - Off label use [Unknown]

NARRATIVE: CASE EVENT DATE: 20251001
